FAERS Safety Report 8422621-1 (Version None)
Quarter: 2012Q2

REPORT INFORMATION
  Report Type: 
  Country: None (occurrence: None)
  Receive Date: 20120608
  Receipt Date: 20120604
  Transmission Date: 20120825
  Serious: Yes (Hospitalization, Other)
  Sender: FDA-Public Use
  Company Number: US-AMGEN-USASP2012022538

PATIENT
  Age: 34 Year
  Sex: Female
  Weight: 108.84 kg

DRUGS (17)
  1. NIFEREX FORTE [Concomitant]
     Dosage: UNK UNK, QD
  2. ERGOCALCIFEROL [Concomitant]
     Dosage: UNK
     Dates: start: 20120101
  3. LACTULOSE [Concomitant]
     Dosage: UNK
  4. NEPHREX FORTE [Concomitant]
     Dosage: UNK
     Dates: start: 20091201
  5. SODIUM BICARBONATE [Concomitant]
     Dosage: UNK
     Dates: start: 20120501
  6. NEXIUM [Concomitant]
     Dosage: UNK
     Dates: start: 20100701
  7. COLACE [Concomitant]
     Dosage: UNK UNK, QD
  8. BACTROBAN [Concomitant]
  9. EPOGEN [Suspect]
     Indication: RENAL FAILURE CHRONIC
     Dosage: 30000 IU, 3 TIMES/WK
     Route: 058
  10. NEPHROCAPS [Concomitant]
     Dosage: UNK UNK, QD
     Dates: start: 20000401
  11. FOLIC ACID [Concomitant]
     Dosage: UNK UNK, QD
     Dates: start: 20120101
  12. HUMALOG [Concomitant]
     Dosage: UNK
     Dates: start: 20081201
  13. NEXIUM [Concomitant]
     Dosage: UNK UNK, QD
     Dates: start: 20100701
  14. PHOSLO [Concomitant]
     Dosage: UNK
     Dates: start: 20111001
  15. BACTROBAN [Concomitant]
     Dosage: UNK
  16. LANTUS [Concomitant]
     Dosage: UNK
     Dates: start: 20081201
  17. MIDODRINE HYDROCHLORIDE [Concomitant]
     Dosage: UNK
     Dates: start: 20120301

REACTIONS (12)
  - DEHYDRATION [None]
  - SEPSIS [None]
  - UPPER RESPIRATORY TRACT INFECTION [None]
  - DIZZINESS [None]
  - DRUG EFFECT DECREASED [None]
  - HYPOKALAEMIA [None]
  - ANAEMIA [None]
  - PYREXIA [None]
  - PERITONITIS BACTERIAL [None]
  - HYPONATRAEMIA [None]
  - TYPE 1 DIABETES MELLITUS [None]
  - HYPOTENSION [None]
